FAERS Safety Report 25138247 (Version 1)
Quarter: 2025Q1

REPORT INFORMATION
  Report Type: Spontaneous
  Country: US (occurrence: US)
  Receive Date: 20250330
  Receipt Date: 20250330
  Transmission Date: 20250408
  Serious: Yes (Life-Threatening, Hospitalization, Other)
  Sender: GLENMARK
  Company Number: US-GLENMARK PHARMACEUTICALS-2025GMK098868

PATIENT
  Age: 34 Year
  Sex: Female

DRUGS (3)
  1. METRONIDAZOLE [Suspect]
     Active Substance: METRONIDAZOLE
     Indication: Trichomoniasis
     Route: 065
  2. SULFAMETHOXAZOLE\TRIMETHOPRIM [Suspect]
     Active Substance: SULFAMETHOXAZOLE\TRIMETHOPRIM
     Indication: Trichomoniasis
     Route: 065
  3. FLUCONAZOLE [Concomitant]
     Active Substance: FLUCONAZOLE
     Indication: Trichomoniasis
     Route: 065

REACTIONS (2)
  - Myopericarditis [Unknown]
  - Drug reaction with eosinophilia and systemic symptoms [Unknown]
